FAERS Safety Report 24659904 (Version 1)
Quarter: 2024Q4

REPORT INFORMATION
  Report Type: Spontaneous
  Country: RU (occurrence: RU)
  Receive Date: 20241125
  Receipt Date: 20241125
  Transmission Date: 20250114
  Serious: Yes (Life-Threatening, Other)
  Sender: NOVARTIS
  Company Number: RU-002147023-NVSC2024RU224832

PATIENT
  Age: 60 Year
  Sex: Female
  Weight: 100 kg

DRUGS (1)
  1. COSENTYX [Suspect]
     Active Substance: SECUKINUMAB
     Indication: Ankylosing spondylitis
     Dosage: UNK (150 MG/ML 1 ML)
     Route: 058
     Dates: start: 20230303, end: 20240315

REACTIONS (7)
  - Drug ineffective [Recovering/Resolving]
  - Blood pressure decreased [Not Recovered/Not Resolved]
  - Diarrhoea [Not Recovered/Not Resolved]
  - Abdominal pain [Not Recovered/Not Resolved]
  - Back pain [Not Recovered/Not Resolved]
  - Spinal pain [Not Recovered/Not Resolved]
  - Dysstasia [Not Recovered/Not Resolved]

NARRATIVE: CASE EVENT DATE: 20230303
